FAERS Safety Report 11860609 (Version 3)
Quarter: 2019Q2

REPORT INFORMATION
  Report Type: Report from Study
  Country: AT (occurrence: AT)
  Receive Date: 20151222
  Receipt Date: 20190522
  Transmission Date: 20190711
  Serious: Yes (Hospitalization)
  Sender: FDA-Public Use
  Company Number: AT-BIOGEN-2015BI130968

PATIENT
  Age: 50 Year
  Sex: Female
  Weight: 70 kg

DRUGS (1)
  1. TYSABRI [Suspect]
     Active Substance: NATALIZUMAB
     Indication: MULTIPLE SCLEROSIS
     Dosage: INFUSED OVER 1 HOUR
     Route: 042
     Dates: start: 20090512

REACTIONS (5)
  - Fall [Recovered/Resolved]
  - Fibromatosis [Not Recovered/Not Resolved]
  - Walking disability [Not Recovered/Not Resolved]
  - Joint injury [Recovered/Resolved]
  - Impaired healing [Not Recovered/Not Resolved]

NARRATIVE: CASE EVENT DATE: 2014
